FAERS Safety Report 11516465 (Version 1)
Quarter: 2015Q3

REPORT INFORMATION
  Report Type: Spontaneous
  Country: FR (occurrence: FR)
  Receive Date: 20150917
  Receipt Date: 20150917
  Transmission Date: 20151125
  Serious: Yes (Hospitalization)
  Sender: FDA-Public Use
  Company Number: FR-ASTRAZENECA-2015SE88103

PATIENT
  Age: 91 Year
  Sex: Female

DRUGS (11)
  1. ATACAND [Suspect]
     Active Substance: CANDESARTAN CILEXETIL
     Indication: HYPERTENSION
     Route: 048
  2. IPERTEN [Concomitant]
     Active Substance: MANIDIPINE
  3. LASILIX [Suspect]
     Active Substance: FUROSEMIDE
     Route: 048
  4. KARDEGIC [Concomitant]
     Active Substance: ASPIRIN LYSINE
  5. TEMERIT [Concomitant]
     Active Substance: NEBIVOLOL
  6. DIFFU K [Concomitant]
     Active Substance: POTASSIUM CHLORIDE
  7. EUPRESSYL [Concomitant]
     Active Substance: URAPIDIL
  8. ARIMIDEX [Concomitant]
     Active Substance: ANASTROZOLE
  9. ESIDREX [Suspect]
     Active Substance: HYDROCHLOROTHIAZIDE
     Indication: HYPERTENSION
     Dosage: 12.5MG DAILY, NON-AZ PRODUCT
     Route: 048
  10. TAHOR [Concomitant]
     Active Substance: ATORVASTATIN CALCIUM
  11. METFORMINE [Concomitant]
     Active Substance: METFORMIN HYDROCHLORIDE

REACTIONS (7)
  - Injury [Unknown]
  - Hyponatraemia [Recovered/Resolved]
  - Acute kidney injury [Recovered/Resolved]
  - Dehydration [Recovered/Resolved]
  - Fall [Unknown]
  - Vertigo [Unknown]
  - Hyperhidrosis [Unknown]

NARRATIVE: CASE EVENT DATE: 20150705
